FAERS Safety Report 6629451-1 (Version None)
Quarter: 2010Q1

REPORT INFORMATION
  Report Type: 
  Country: None (occurrence: None)
  Receive Date: 20100311
  Receipt Date: 20090717
  Transmission Date: 20100710
  Serious: No
  Sender: FDA-Public Use
  Company Number: US-BIOGENIDEC-2009BI022191

PATIENT
  Sex: Female

DRUGS (3)
  1. AVONEX [Suspect]
     Indication: MULTIPLE SCLEROSIS
     Route: 030
     Dates: start: 20000101
  2. AVONEX [Suspect]
     Route: 030
     Dates: end: 20060401
  3. AVONEX [Suspect]
     Route: 030
     Dates: start: 20090401

REACTIONS (3)
  - INFLUENZA LIKE ILLNESS [None]
  - SLUGGISHNESS [None]
  - VOMITING [None]
